FAERS Safety Report 7560305-2 (Version None)
Quarter: 2011Q2

REPORT INFORMATION
  Report Type: 
  Country: None (occurrence: None)
  Receive Date: 20110614
  Receipt Date: 20110530
  Transmission Date: 20111010
  Serious: Yes (Other)
  Sender: FDA-Public Use
  Company Number: UCM201106-000015

PATIENT
  Age: 16 Year
  Sex: Female
  Weight: 63.8 kg

DRUGS (5)
  1. SIMVASTATIN [Concomitant]
  2. LOSARTAN POTASSIUM [Suspect]
     Indication: PROTEINURIA
     Dosage: 0.4 MG/KG/DAY
  3. ALISKIREN [Suspect]
     Indication: PROTEINURIA
     Dosage: 150 MG DAILY
  4. ENALAPRIL MALEATE [Suspect]
     Dosage: 0.8 MG/KG/DAY
  5. HYDROCHLOROTHIAZIDE [Suspect]
     Indication: PROTEINURIA
     Dosage: 0.8 MG/KG/DAY

REACTIONS (7)
  - HAEMODIALYSIS [None]
  - HYPERKALAEMIA [None]
  - URINE ALBUMIN/CREATININE RATIO INCREASED [None]
  - BLOOD CREATININE INCREASED [None]
  - RENAL IMPAIRMENT [None]
  - GLOMERULAR FILTRATION RATE DECREASED [None]
  - CONDITION AGGRAVATED [None]
